FAERS Safety Report 13331964 (Version 1)
Quarter: 2017Q1

REPORT INFORMATION
  Report Type: Spontaneous
  Country: US (occurrence: US)
  Receive Date: 20170314
  Receipt Date: 20170314
  Transmission Date: 20170428
  Serious: No
  Sender: FDA-Public Use
  Company Number: US-JNJFOC-20170209290

PATIENT
  Age: 24 Year
  Sex: Female
  Weight: 39.92 kg

DRUGS (1)
  1. CHILDRENS TYLENOL [Suspect]
     Active Substance: ACETAMINOPHEN
     Indication: PAIN
     Dosage: THROUGH FEEDING TUBE AS NEEDED AT LEAST 4 HOURS BETWEEN
     Route: 050

REACTIONS (3)
  - Temperature regulation disorder [Recovered/Resolved]
  - Drug administered to patient of inappropriate age [Recovered/Resolved]
  - Incorrect route of drug administration [Recovered/Resolved]
